FAERS Safety Report 14820317 (Version 2)
Quarter: 2023Q1

REPORT INFORMATION
  Report Type: Spontaneous
  Country: FR (occurrence: FR)
  Receive Date: 20180427
  Receipt Date: 20230125
  Transmission Date: 20230417
  Serious: Yes (Other)
  Sender: FDA-Public Use
  Company Number: None

PATIENT
  Age: 64 Year
  Sex: Female

DRUGS (4)
  1. STALEVO [Suspect]
     Active Substance: CARBIDOPA\ENTACAPONE\LEVODOPA
     Indication: Parkinson^s disease
     Dosage: 4 DOSAGE FORM (75/18.75/200 MG), QD
     Route: 048
     Dates: start: 201409
  2. PIRIBEDIL [Suspect]
     Active Substance: PIRIBEDIL
     Indication: Parkinson^s disease
     Dosage: 4 DOSAGE FORM, QD
     Route: 048
     Dates: start: 20060321
  3. AZILECT [Suspect]
     Active Substance: RASAGILINE MESYLATE
     Indication: Parkinson^s disease
     Dosage: 1 DOSAGE FORM, QD
     Route: 048
     Dates: start: 20101209
  4. AZILECT [Suspect]
     Active Substance: RASAGILINE MESYLATE
     Dosage: 4 DOSAGE FORM, QD
     Route: 048
     Dates: start: 201409

REACTIONS (3)
  - Joint swelling [Unknown]
  - Oedema peripheral [Unknown]
  - Arthralgia [Unknown]

NARRATIVE: CASE EVENT DATE: 20170101
